FAERS Safety Report 4928411-6 (Version None)
Quarter: 2006Q1

REPORT INFORMATION
  Report Type: 
  Country: None (occurrence: None)
  Receive Date: 20060223
  Receipt Date: 20060215
  Transmission Date: 20060701
  Serious: Yes (Other)
  Sender: FDA-Public Use
  Company Number: MSTR-PR-0602S-0001

PATIENT
  Sex: Male

DRUGS (1)
  1. METASTRON [Suspect]
     Indication: METASTASES TO BONE
     Dosage: 148 MBQ, SINGLE DOSE, I.V.
     Route: 042
     Dates: start: 20060208, end: 20060208

REACTIONS (1)
  - PULMONARY OEDEMA [None]
